FAERS Safety Report 5849963-8 (Version None)
Quarter: 2008Q3

REPORT INFORMATION
  Report Type: 
  Country: None (occurrence: None)
  Receive Date: 20080731
  Receipt Date: 20080409
  Transmission Date: 20090109
  Serious: No
  Sender: FDA-Public Use
  Company Number: US200804002764

PATIENT
  Age: 63 Year
  Sex: Female
  Weight: 66.2 kg

DRUGS (5)
  1. BYETTA [Suspect]
     Indication: METABOLIC SYNDROME
     Dosage: SEE IMAGE
     Route: 058
     Dates: start: 20060101, end: 20060101
  2. BYETTA [Suspect]
     Indication: METABOLIC SYNDROME
     Dosage: SEE IMAGE
     Route: 058
     Dates: start: 20060101, end: 20060101
  3. BYETTA [Suspect]
     Indication: METABOLIC SYNDROME
     Dosage: SEE IMAGE
     Route: 058
     Dates: start: 20060101, end: 20070201
  4. BYETTA [Suspect]
     Indication: METABOLIC SYNDROME
     Dosage: SEE IMAGE
     Route: 058
     Dates: start: 20080101, end: 20080201
  5. BYETTA [Suspect]
     Indication: METABOLIC SYNDROME
     Dosage: SEE IMAGE
     Route: 058
     Dates: start: 20080201

REACTIONS (6)
  - BLOOD GLUCOSE DECREASED [None]
  - CONSTIPATION [None]
  - DIZZINESS [None]
  - INCREASED APPETITE [None]
  - NAUSEA [None]
  - WEIGHT DECREASED [None]
